FAERS Safety Report 13507969 (Version 1)
Quarter: 2017Q2

REPORT INFORMATION
  Report Type: Spontaneous
  Country: US (occurrence: US)
  Receive Date: 20170503
  Receipt Date: 20170503
  Transmission Date: 20170830
  Serious: No
  Sender: FDA-Public Use
  Company Number: US-PFIZER INC-2017190544

PATIENT
  Sex: Male

DRUGS (1)
  1. XELJANZ XR [Suspect]
     Active Substance: TOFACITINIB CITRATE
     Dosage: 11 MG, DAILY

REACTIONS (16)
  - Joint swelling [Unknown]
  - Synovitis [Unknown]
  - Restless legs syndrome [Unknown]
  - Nodal osteoarthritis [Unknown]
  - Blister [Unknown]
  - Dyspnoea [Unknown]
  - Fatigue [Unknown]
  - Blood creatinine increased [Unknown]
  - Hyperkeratosis [Unknown]
  - Joint stiffness [Unknown]
  - Glomerular filtration rate decreased [Unknown]
  - Limb discomfort [Unknown]
  - Arthralgia [Unknown]
  - Joint crepitation [Unknown]
  - Dry eye [Unknown]
  - Fibromyalgia [Unknown]
